FAERS Safety Report 25156890 (Version 1)
Quarter: 2025Q2

REPORT INFORMATION
  Report Type: Spontaneous
  Country: CA (occurrence: CA)
  Receive Date: 20250403
  Receipt Date: 20250403
  Transmission Date: 20250717
  Serious: Yes (Other)
  Sender: GLAXOSMITHKLINE
  Company Number: CA-GSK-CA2025037440

PATIENT

DRUGS (6)
  1. FLOVENT [Suspect]
     Active Substance: FLUTICASONE PROPIONATE
     Indication: Product used for unknown indication
  2. VENTOLIN [Suspect]
     Active Substance: ALBUTEROL SULFATE
     Indication: Product used for unknown indication
  3. AMLODIPINE [Concomitant]
     Active Substance: AMLODIPINE BESYLATE
     Indication: Product used for unknown indication
  4. APIXABAN [Concomitant]
     Active Substance: APIXABAN
     Indication: Product used for unknown indication
  5. PANTOPRAZOLE [Concomitant]
     Active Substance: PANTOPRAZOLE
     Indication: Product used for unknown indication
  6. EDARAVONE [Concomitant]
     Active Substance: EDARAVONE
     Indication: Product used for unknown indication
     Route: 048
     Dates: start: 20240626

REACTIONS (10)
  - Amyotrophic lateral sclerosis [Unknown]
  - Candida infection [Unknown]
  - Dysphagia [Unknown]
  - Speech disorder [Unknown]
  - Asthma [Unknown]
  - Hypertension [Unknown]
  - Heart rate irregular [Unknown]
  - Seasonal allergy [Unknown]
  - Allergy to animal [Unknown]
  - Dust allergy [Unknown]

NARRATIVE: CASE EVENT DATE: 20231215
